FAERS Safety Report 6955100-9 (Version None)
Quarter: 2010Q3

REPORT INFORMATION
  Report Type: 
  Country: None (occurrence: None)
  Receive Date: 20100825
  Receipt Date: 20080718
  Transmission Date: 20110219
  Serious: Yes (Other)
  Sender: FDA-Public Use
  Company Number: 2008PV000057

PATIENT
  Age: 42 Year
  Sex: Male

DRUGS (2)
  1. DEPOCYT [Suspect]
     Indication: METASTASES TO MENINGES
  2. ANTIEMETICS AND ANTINAUSEANTS [Concomitant]

REACTIONS (2)
  - ARACHNOIDITIS [None]
  - DYSTONIA [None]
